FAERS Safety Report 26176785 (Version 1)
Quarter: 2025Q4

REPORT INFORMATION
  Report Type: Spontaneous
  Country: US (occurrence: US)
  Receive Date: 20251218
  Receipt Date: 20251218
  Transmission Date: 20260118
  Serious: No
  Sender: ABBVIE
  Company Number: US-ABBVIE-6596802

PATIENT
  Age: 47 Year
  Sex: Female

DRUGS (6)
  1. BOTOX COSMETIC [Suspect]
     Active Substance: ONABOTULINUMTOXINA
     Indication: Skin wrinkling
     Route: 030
     Dates: start: 20250917, end: 20250917
  2. BOTOX COSMETIC [Suspect]
     Active Substance: ONABOTULINUMTOXINA
     Indication: Skin wrinkling
     Dosage: TOTAL 60 UNIT
     Route: 030
     Dates: start: 20251125, end: 20251125
  3. BOTOX COSMETIC [Suspect]
     Active Substance: ONABOTULINUMTOXINA
     Indication: Skin wrinkling
     Route: 030
     Dates: start: 20250917, end: 20250917
  4. BOTOX COSMETIC [Suspect]
     Active Substance: ONABOTULINUMTOXINA
     Indication: Skin wrinkling
     Dosage: TOTAL 60 UNIT
     Route: 030
     Dates: start: 20251125, end: 20251125
  5. BOTOX COSMETIC [Suspect]
     Active Substance: ONABOTULINUMTOXINA
     Indication: Skin wrinkling
     Route: 030
     Dates: start: 20250917, end: 20250917
  6. BOTOX COSMETIC [Suspect]
     Active Substance: ONABOTULINUMTOXINA
     Indication: Skin wrinkling
     Dosage: TOTAL 60 UNIT
     Route: 030
     Dates: start: 20251125, end: 20251125

REACTIONS (1)
  - Drug ineffective [Not Recovered/Not Resolved]

NARRATIVE: CASE EVENT DATE: 20250917
